FAERS Safety Report 19285745 (Version 1)
Quarter: 2021Q2

REPORT INFORMATION
  Report Type: Spontaneous
  Country: US (occurrence: US)
  Receive Date: 20210521
  Receipt Date: 20210521
  Transmission Date: 20210717
  Serious: No
  Sender: FDA-Public Use
  Company Number: US-RADIUS HEALTH INC.-2020US002299

PATIENT
  Age: 69 Year
  Sex: Female

DRUGS (2)
  1. TYMLOS [Suspect]
     Active Substance: ABALOPARATIDE
     Dosage: 40MCG, DAILY
     Route: 058
     Dates: start: 202006
  2. TYMLOS [Suspect]
     Active Substance: ABALOPARATIDE
     Indication: OSTEOPOROSIS
     Dosage: 80 MCG, DAILY
     Route: 058

REACTIONS (9)
  - Musculoskeletal chest pain [Unknown]
  - Intentional product misuse [Unknown]
  - Bone pain [Unknown]
  - Myalgia [Unknown]
  - Chest pain [Unknown]
  - Vomiting [Unknown]
  - Tracheal pain [Unknown]
  - Headache [Unknown]
  - Nausea [Unknown]

NARRATIVE: CASE EVENT DATE: 202006
